FAERS Safety Report 11880479 (Version 1)
Quarter: 2015Q4

REPORT INFORMATION
  Report Type: Report from Study
  Country: FR (occurrence: FR)
  Receive Date: 20151230
  Receipt Date: 20151230
  Transmission Date: 20160305
  Serious: Yes (Other)
  Sender: FDA-Public Use
  Company Number: FR-TAKEDA-2015MPI008777

PATIENT
  Age: 84 Year
  Sex: Female

DRUGS (6)
  1. VELCADE [Suspect]
     Active Substance: BORTEZOMIB
     Indication: PLASMA CELL MYELOMA
     Dosage: UNK
     Route: 058
     Dates: start: 20141230
  2. DEXAMETHASONE. [Suspect]
     Active Substance: DEXAMETHASONE
     Dosage: 20 MG, QD
     Route: 048
     Dates: start: 20150123, end: 20150227
  3. VELCADE [Suspect]
     Active Substance: BORTEZOMIB
     Dosage: 2.1 MG, QD
     Route: 058
     Dates: start: 20150313, end: 20150401
  4. DEXAMETHASONE. [Suspect]
     Active Substance: DEXAMETHASONE
     Dosage: 20 MG, QD
     Route: 048
     Dates: start: 20150313, end: 20150401
  5. VELCADE [Suspect]
     Active Substance: BORTEZOMIB
     Dosage: 2.1 MG, QD
     Route: 058
     Dates: start: 20150123, end: 20150227
  6. DEXAMETHASONE. [Suspect]
     Active Substance: DEXAMETHASONE
     Indication: PLASMA CELL MYELOMA
     Dosage: UNK
     Route: 048
     Dates: start: 20141230

REACTIONS (3)
  - Orthostatic hypotension [Unknown]
  - Neurotoxicity [Unknown]
  - Malaise [Recovering/Resolving]

NARRATIVE: CASE EVENT DATE: 20150227
